FAERS Safety Report 7756486-8 (Version None)
Quarter: 2011Q3

REPORT INFORMATION
  Report Type: 
  Country: None (occurrence: None)
  Receive Date: 20110916
  Receipt Date: 20110914
  Transmission Date: 20111222
  Serious: Yes (Other)
  Sender: FDA-Public Use
  Company Number: US-BRACCO-004885

PATIENT
  Sex: Male
  Weight: 82 kg

DRUGS (49)
  1. CONTRAST MEDIA [Suspect]
     Indication: ANGIOGRAM
     Dates: start: 20001026
  2. ARANESP [Concomitant]
  3. RENAGEL [Concomitant]
  4. INDERAL [Concomitant]
  5. OMNISCAN [Suspect]
     Indication: ANGIOGRAM
     Dates: start: 20040504, end: 20040504
  6. LASIX [Concomitant]
  7. DIOVAN [Concomitant]
  8. DEMADEX [Concomitant]
  9. AVAPRO [Concomitant]
  10. CONTRAST MEDIA [Suspect]
     Indication: RENAL ARTERY STENOSIS
     Dates: start: 20050304, end: 20050304
  11. NOVOLOG [Concomitant]
     Dosage: DOSE: 70/30
  12. LOPRESSOR [Concomitant]
  13. METOPROLOL TARTRATE [Concomitant]
  14. MAGNEVIST [Suspect]
     Indication: INVESTIGATION
     Dates: start: 20050304, end: 20050304
  15. PROGRAF [Concomitant]
  16. GABAPENTIN [Concomitant]
  17. LIPITOR [Concomitant]
  18. CONTRAST MEDIA [Suspect]
     Indication: CORONARY ARTERY DISEASE
     Dates: start: 19901213
  19. CONTRAST MEDIA [Suspect]
     Indication: NUCLEAR MAGNETIC RESONANCE IMAGING
     Dates: start: 20050304
  20. PROHANCE [Suspect]
     Indication: ANGIOGRAM
     Dates: start: 20031116, end: 20031116
  21. RANEXA [Concomitant]
  22. AMBIEN [Concomitant]
  23. STARLIX [Concomitant]
  24. CONTRAST MEDIA [Suspect]
     Indication: CARDIAC FAILURE CONGESTIVE
     Dates: start: 20010904
  25. MAGNEVIST [Suspect]
     Indication: ANGIOPLASTY
     Dates: start: 20031010
  26. JANUVIA [Concomitant]
  27. ASPIRIN [Concomitant]
  28. DILTIAZEM [Concomitant]
  29. CONTRAST MEDIA [Suspect]
     Dates: start: 19901213, end: 20050304
  30. MAGNEVIST [Suspect]
     Indication: NUCLEAR MAGNETIC RESONANCE IMAGING ABDOMINAL
     Dates: start: 20050304, end: 20050304
  31. PLAVIX [Concomitant]
  32. ASPIRIN [Concomitant]
  33. IMDUR [Concomitant]
  34. NEURONTIN [Concomitant]
  35. FERROUS SULFATE TAB [Concomitant]
  36. PREDNISONE [Concomitant]
  37. CONTRAST MEDIA [Suspect]
     Indication: RENAL FAILURE CHRONIC
     Dates: start: 20050315
  38. CONTRAST MEDIA [Suspect]
     Dates: start: 19901213, end: 20050304
  39. MAGNEVIST [Suspect]
     Indication: NUCLEAR MAGNETIC RESONANCE IMAGING
     Dates: start: 20040504, end: 20040504
  40. MYCOPHENOLATE MOFETIL (CELLCEPT) [Concomitant]
  41. NEPHROVITE [Concomitant]
  42. COREG [Concomitant]
  43. COZAAR [Concomitant]
  44. ALLOPURINOL [Concomitant]
  45. FLOMAX [Concomitant]
  46. VISIPAQUE [Suspect]
     Indication: ANGIOPLASTY
     Dates: start: 20050315
  47. PROHANCE [Suspect]
     Indication: NUCLEAR MAGNETIC RESONANCE IMAGING BRAIN
     Dates: start: 20030508, end: 20030508
  48. OMNISCAN [Suspect]
     Indication: NUCLEAR MAGNETIC RESONANCE IMAGING
     Dates: start: 20030402, end: 20110402
  49. PIOGLITAZONE [Concomitant]

REACTIONS (1)
  - NEPHROGENIC SYSTEMIC FIBROSIS [None]
